FAERS Safety Report 6403467-2 (Version None)
Quarter: 2009Q4

REPORT INFORMATION
  Report Type: 
  Country: None (occurrence: None)
  Receive Date: 20091013
  Receipt Date: 20091006
  Transmission Date: 20100525
  Serious: Yes (Other)
  Sender: FDA-Public Use
  Company Number: 2009SP022584

PATIENT
  Age: 49 Year
  Sex: Male

DRUGS (1)
  1. CHORIONIC GONADOTROPIN [Suspect]
     Dosage: 5000 UNK

REACTIONS (1)
  - LEUKAEMIA [None]
